FAERS Safety Report 9008499 (Version 3)
Quarter: 2013Q2

REPORT INFORMATION
  Report Type: Spontaneous
  Country: US (occurrence: US)
  Receive Date: 20130111
  Receipt Date: 20130503
  Transmission Date: 20140414
  Serious: Yes (Hospitalization, Other)
  Sender: FDA-Public Use
  Company Number: US-PFIZER INC-2013007093

PATIENT
  Age: 10 Year
  Sex: Male
  Weight: 29.5 kg

DRUGS (3)
  1. GENOTROPIN [Suspect]
     Indication: DWARFISM
     Dosage: 1.4 MG, 7 DAY/WEEKLY (1X/DAY)
     Route: 058
     Dates: start: 20111203, end: 20130105
  2. GENOTROPIN [Suspect]
     Indication: GROWTH HORMONE DEFICIENCY
     Dosage: 1.4 MG, 1X/DAY
     Route: 030
     Dates: end: 201301
  3. CONCERTA [Concomitant]
     Dosage: UNK

REACTIONS (5)
  - Headache [Not Recovered/Not Resolved]
  - Benign intracranial hypertension [Unknown]
  - Intracranial pressure increased [Unknown]
  - Infectious mononucleosis [Unknown]
  - Incorrect route of drug administration [Unknown]
